FAERS Safety Report 6968319-8 (Version None)
Quarter: 2010Q3

REPORT INFORMATION
  Report Type: 
  Country: None (occurrence: None)
  Receive Date: 20100907
  Receipt Date: 20100827
  Transmission Date: 20110219
  Serious: Yes (Hospitalization)
  Sender: FDA-Public Use
  Company Number: US-ROCHE-721057

PATIENT
  Sex: Female
  Weight: 124.7 kg

DRUGS (10)
  1. TRASTUZUMAB [Suspect]
     Indication: BREAST CANCER
     Dosage: LOADING DOSE.
     Route: 042
     Dates: start: 20091104
  2. TRASTUZUMAB [Suspect]
     Dosage: FREQUENCY: UNKNOWN, LAST OSE PRIOR TO SAE 14 JULY 2010, TEMPORARILY DISCONTINUED, CYCLE M6
     Route: 042
  3. IXABEPILONE [Suspect]
     Indication: BREAST CANCER
     Dosage: LAST DOSE PRIOR TO SAE 26 FEBRUARY 2010, DOSE AND FREQUENCY UNKNOWN, TEMPORARILY DISCONTINUED
     Route: 065
     Dates: start: 20091104
  4. CARBOPLATIN [Suspect]
     Indication: BREAST CANCER
     Dosage: DOSE AND FREQUENCY UNKNOWN, LAST DOSE PRIOR TO SAE 26 FEBRUARY 2010, TEMPORARILY DISCONTINUED
     Route: 065
     Dates: start: 20091104
  5. COUMADIN [Concomitant]
     Dosage: DAILY
     Route: 048
  6. LASIX [Concomitant]
     Dosage: DAILY, AS NECESARY
  7. NEURONTIN [Concomitant]
     Dosage: FREQUENCY: QID
     Route: 048
  8. OMEPRAZOLE [Concomitant]
     Dosage: DAILY
     Route: 048
  9. OXYCODONE HCL AND ACETAMINOPHEN [Concomitant]
     Dosage: DOSE: 10/325, FREQUENCY: Q6HRPM
  10. PAROXETINE [Concomitant]
     Dosage: DAILY

REACTIONS (1)
  - CHEST PAIN [None]
